FAERS Safety Report 23811602 (Version 5)
Quarter: 2025Q4

REPORT INFORMATION
  Report Type: Spontaneous
  Country: PA (occurrence: PA)
  Receive Date: 20240503
  Receipt Date: 20251218
  Transmission Date: 20260118
  Serious: Yes (Other)
  Sender: SANDOZ
  Company Number: PA-002147023-NVSC2021PA140953

PATIENT
  Sex: Female
  Weight: 68 kg

DRUGS (42)
  1. ANASTROZOLE [Suspect]
     Active Substance: ANASTROZOLE
     Indication: Breast cancer
     Dosage: 1 MG, QD (EVERY 24 HOUR)
     Route: 048
     Dates: start: 202101
  2. ANASTROZOLE [Suspect]
     Active Substance: ANASTROZOLE
     Dosage: UNK
     Route: 065
     Dates: end: 20220721
  3. KISQALI [Suspect]
     Active Substance: RIBOCICLIB SUCCINATE
     Dosage: 400 MG, QD
     Route: 065
  4. KISQALI [Suspect]
     Active Substance: RIBOCICLIB SUCCINATE
     Dosage: 1 DOSAGE FORM, QD (1 TABLET, DAILY)
     Route: 065
  5. KISQALI [Suspect]
     Active Substance: RIBOCICLIB SUCCINATE
     Dosage: 200 MG, QD
     Route: 048
     Dates: start: 20210106
  6. KISQALI [Suspect]
     Active Substance: RIBOCICLIB SUCCINATE
     Dosage: 200 MG, QD
     Route: 048
     Dates: start: 20210520
  7. KISQALI [Suspect]
     Active Substance: RIBOCICLIB SUCCINATE
     Dosage: 200 MG, QD
     Route: 048
     Dates: start: 2021
  8. KISQALI [Suspect]
     Active Substance: RIBOCICLIB SUCCINATE
     Dosage: 200 MG, QD (1X 200 MG)
     Route: 048
     Dates: start: 202301
  9. KISQALI [Suspect]
     Active Substance: RIBOCICLIB SUCCINATE
     Dosage: 200 MG, QD
     Route: 048
  10. KISQALI [Suspect]
     Active Substance: RIBOCICLIB SUCCINATE
     Indication: Breast cancer metastatic
     Dosage: 400 MG, QD
     Route: 048
     Dates: start: 202001
  11. KISQALI [Suspect]
     Active Substance: RIBOCICLIB SUCCINATE
     Dosage: 400 MG, QD
     Route: 048
     Dates: start: 2020
  12. KISQALI [Suspect]
     Active Substance: RIBOCICLIB SUCCINATE
     Dosage: 400 MG, QD
     Route: 048
  13. KISQALI [Suspect]
     Active Substance: RIBOCICLIB SUCCINATE
     Dosage: 400 MG, QD (2 (400MG)
     Route: 048
  14. KISQALI [Suspect]
     Active Substance: RIBOCICLIB SUCCINATE
     Dosage: 400 MG, QD (2 TABLETS)
     Route: 048
     Dates: start: 20210520
  15. KISQALI [Suspect]
     Active Substance: RIBOCICLIB SUCCINATE
     Dosage: 600 MG, QD
     Route: 048
     Dates: start: 20210520, end: 20220203
  16. KISQALI [Suspect]
     Active Substance: RIBOCICLIB SUCCINATE
     Dosage: 600 MG, QD
     Route: 048
  17. KISQALI [Suspect]
     Active Substance: RIBOCICLIB SUCCINATE
     Dosage: 600 MG, QD (3 (600MG)
     Route: 048
     Dates: start: 2021
  18. BETAMETHASONE [Concomitant]
     Active Substance: BETAMETHASONE
     Indication: Product used for unknown indication
     Dosage: UNK
     Route: 065
  19. CABERGOLINE [Concomitant]
     Active Substance: CABERGOLINE
     Dosage: 0.5 MG, QD (EVERY 10 DAYS)
     Route: 065
  20. CABERGOLINE [Concomitant]
     Active Substance: CABERGOLINE
     Indication: Product used for unknown indication
     Dosage: UNK (EVERY 10 DAYS) (1)
     Route: 065
     Dates: start: 1989
  21. CABERGOLINE [Concomitant]
     Active Substance: CABERGOLINE
     Dosage: UNK (EVERY 10 DAYS) (1)
     Route: 065
     Dates: start: 1989
  22. CALCIUM\CHOLECALCIFEROL [Concomitant]
     Active Substance: CALCIUM\CHOLECALCIFEROL
     Indication: Product used for unknown indication
     Dosage: UNK 1 X 1200MG (A DAY)
     Route: 065
     Dates: start: 202101
  23. CHLORPHENIRAMINE MALEATE [Concomitant]
     Active Substance: CHLORPHENIRAMINE MALEATE
     Indication: Product used for unknown indication
     Dosage: UNK
     Route: 065
  24. DIABETEX [Concomitant]
     Indication: Product used for unknown indication
     Dosage: UNK
     Route: 065
  25. EXEMESTANE [Concomitant]
     Active Substance: EXEMESTANE
     Dosage: 25 MG, QD (A DAY)
     Route: 065
  26. EXEMESTANE [Concomitant]
     Active Substance: EXEMESTANE
     Indication: Breast cancer
     Dosage: UNK
     Route: 065
  27. FOLIC ACID\VITAMINS [Concomitant]
     Active Substance: FOLIC ACID\VITAMINS
     Indication: Product used for unknown indication
     Dosage: 5 MG, QD (A DAY)
     Route: 065
  28. INDAPAMIDE [Concomitant]
     Active Substance: INDAPAMIDE
     Dosage: 1.5 MG, QD  (A DAY)
     Route: 065
  29. INDAPAMIDE [Concomitant]
     Active Substance: INDAPAMIDE
     Indication: Hypertension
     Dosage: 1.5 MG, QD (START DATE: 9 OR 10 YEARS AGO APPROXIMATELY)
     Route: 065
  30. LEVOTHYROXINE [Concomitant]
     Active Substance: LEVOTHYROXINE
     Dosage: 0.1 MG, QD (START DATE: 22 YEARS AGO APPROXIMATELY)
     Route: 065
  31. LEVOTHYROXINE [Concomitant]
     Active Substance: LEVOTHYROXINE
     Indication: Hypothyroidism
     Dosage: UNK (A DAY) HALF
     Route: 065
     Dates: start: 1989
  32. LEVOTHYROXINE [Concomitant]
     Active Substance: LEVOTHYROXINE
     Dosage: ? X 0.1MG (IN THE MORNING)
     Route: 065
  33. LEVOTHYROXINE [Concomitant]
     Active Substance: LEVOTHYROXINE
     Dosage: UNK (A DAY) HALF
     Route: 065
     Dates: start: 1989
  34. MAGNESIUM CITRATE [Concomitant]
     Active Substance: MAGNESIUM CITRATE
     Indication: Product used for unknown indication
     Dosage: 200 MG, BID
     Route: 065
     Dates: start: 202101
  35. Meticel [Concomitant]
     Indication: Product used for unknown indication
     Dosage: UNK (DROP)
     Route: 065
  36. PERINDOPRIL [Concomitant]
     Active Substance: PERINDOPRIL
     Dosage: 5 MG, QD (AT NIGHT)
     Route: 065
  37. PERINDOPRIL [Concomitant]
     Active Substance: PERINDOPRIL
     Indication: Hypertension
     Dosage: UNK, QD (START DATE: 4 YEARS AGO APPROXIMATELY, 1 OF  5 MG)
     Route: 065
  38. PREDNISOLONE [Concomitant]
     Active Substance: PREDNISOLONE
     Indication: Product used for unknown indication
     Dosage: UNK
     Route: 065
  39. SIMVASTATIN [Concomitant]
     Active Substance: SIMVASTATIN
     Dosage: 20 MG, QD (START DATE: 22 YEARS AGO APPROXIMATELY)
     Route: 065
  40. SIMVASTATIN [Concomitant]
     Active Substance: SIMVASTATIN
     Indication: Blood cholesterol
     Dosage: UNK 2 TABLETS AT NIGHT
     Route: 065
     Dates: start: 1989
  41. SIMVASTATIN [Concomitant]
     Active Substance: SIMVASTATIN
     Dosage: UNK 2 TABLETS AT NIGHT
     Route: 065
     Dates: start: 1989
  42. Trigentax [Concomitant]
     Indication: Product used for unknown indication
     Dosage: UNK
     Route: 065

REACTIONS (67)
  - Cyst [Unknown]
  - Haemorrhage [Unknown]
  - Aphthous ulcer [Recovering/Resolving]
  - Vitiligo [Not Recovered/Not Resolved]
  - Psoriasis [Not Recovered/Not Resolved]
  - Chest pain [Recovered/Resolved]
  - Skin exfoliation [Unknown]
  - Skin lesion [Unknown]
  - Malaise [Unknown]
  - Radiation injury [Unknown]
  - Feeling hot [Recovered/Resolved]
  - Skin hyperpigmentation [Unknown]
  - Gastritis [Recovering/Resolving]
  - Eye pruritus [Unknown]
  - Onycholysis [Unknown]
  - Nail disorder [Unknown]
  - Nail discolouration [Unknown]
  - Eye allergy [Not Recovered/Not Resolved]
  - Madarosis [Unknown]
  - Scab [Unknown]
  - Abdominal discomfort [Recovering/Resolving]
  - Subcutaneous abscess [Unknown]
  - Taste disorder [Unknown]
  - Tooth abscess [Recovering/Resolving]
  - Axillary pain [Unknown]
  - Tendonitis [Unknown]
  - Furuncle [Unknown]
  - Throat irritation [Recovering/Resolving]
  - Acne [Unknown]
  - Soft tissue disorder [Unknown]
  - Excessive granulation tissue [Unknown]
  - Myofascitis [Unknown]
  - Memory impairment [Unknown]
  - Pain [Unknown]
  - Foreign body [Unknown]
  - Mucosal inflammation [Recovering/Resolving]
  - Dermatitis [Recovering/Resolving]
  - Erythema [Unknown]
  - Abdominal pain upper [Recovered/Resolved]
  - Bone pain [Unknown]
  - Peripheral swelling [Unknown]
  - Pruritus [Unknown]
  - Dizziness [Recovering/Resolving]
  - Nasopharyngitis [Recovered/Resolved]
  - Oropharyngeal pain [Recovering/Resolving]
  - Stomatitis [Recovered/Resolved]
  - Rhinitis [Unknown]
  - Cough [Recovered/Resolved]
  - Hypophagia [Unknown]
  - Illness [Unknown]
  - Muscle spasms [Unknown]
  - Burning sensation [Not Recovered/Not Resolved]
  - Dry skin [Unknown]
  - Dysphagia [Unknown]
  - Blister [Not Recovered/Not Resolved]
  - Drug intolerance [Unknown]
  - Arthralgia [Unknown]
  - Urticaria [Unknown]
  - Diarrhoea [Recovered/Resolved]
  - Rash [Not Recovered/Not Resolved]
  - Hypersensitivity [Not Recovered/Not Resolved]
  - Nausea [Recovered/Resolved]
  - Nausea [Recovering/Resolving]
  - Skin depigmentation [Unknown]
  - Rash macular [Unknown]
  - Sensitive skin [Unknown]
  - Vomiting [Unknown]

NARRATIVE: CASE EVENT DATE: 20210101
